FAERS Safety Report 15082834 (Version 1)
Quarter: 2018Q2

REPORT INFORMATION
  Report Type: Spontaneous
  Country: JP (occurrence: JP)
  Receive Date: 20180628
  Receipt Date: 20180628
  Transmission Date: 20180711
  Serious: Yes (Life-Threatening)
  Sender: FDA-Public Use
  Company Number: PHHY2018JP028895

PATIENT
  Age: 5 Year
  Sex: Female

DRUGS (2)
  1. PIPERACILLIN AND TAZOBACTAM [Suspect]
     Active Substance: PIPERACILLIN SODIUM\TAZOBACTAM SODIUM
     Indication: ACUTE FOCAL BACTERIAL NEPHRITIS
     Route: 042
  2. AMIKACIN. [Concomitant]
     Active Substance: AMIKACIN
     Indication: ACUTE FOCAL BACTERIAL NEPHRITIS
     Route: 042

REACTIONS (7)
  - Hypofibrinogenaemia [Unknown]
  - Natural killer cell count decreased [Unknown]
  - Rash maculo-papular [Recovering/Resolving]
  - Histiocytosis haematophagic [Unknown]
  - Interleukin-2 receptor increased [Unknown]
  - Pyrexia [Recovering/Resolving]
  - Serum ferritin increased [Unknown]
